FAERS Safety Report 12605217 (Version 1)
Quarter: 2016Q3

REPORT INFORMATION
  Report Type: Spontaneous
  Country: US (occurrence: US)
  Receive Date: 20160729
  Receipt Date: 20160729
  Transmission Date: 20161109
  Serious: No
  Sender: FDA-Public Use
  Company Number: US-ASTRAZENECA-2016SE79845

PATIENT
  Age: 143 Day
  Sex: Male
  Weight: 97.1 kg

DRUGS (7)
  1. PULMICORT FLEXHALER [Suspect]
     Active Substance: BUDESONIDE
     Indication: PNEUMONIA
     Dosage: 90 UNKNOWN
     Route: 055
     Dates: start: 20160628
  2. PULMICORT FLEXHALER [Suspect]
     Active Substance: BUDESONIDE
     Indication: ASTHMA
     Dosage: 90 UNKNOWN
     Route: 055
     Dates: start: 20160628
  3. SOLGAR VM MULTIVITAMIN [Concomitant]
     Dosage: 1DAILY
     Route: 048
  4. XAROLTO [Concomitant]
     Indication: ANTICOAGULANT THERAPY
     Route: 048
  5. BYSTOLIC [Concomitant]
     Active Substance: NEBIVOLOL HYDROCHLORIDE
     Indication: HYPERTENSION
     Route: 048
  6. X FORGE360 10/160 [Concomitant]
     Indication: HYPERTENSION
     Dosage: 1 DAILY
     Route: 048
  7. MAGNESIUM [Concomitant]
     Active Substance: MAGNESIUM
     Indication: CARDIAC DISORDER
     Route: 048

REACTIONS (2)
  - Pneumonia [Unknown]
  - Heart rate abnormal [Unknown]

NARRATIVE: CASE EVENT DATE: 20160718
